FAERS Safety Report 20461614 (Version 1)
Quarter: 2022Q1

REPORT INFORMATION
  Report Type: Other
  Country: US (occurrence: None)
  Receive Date: 20220211
  Receipt Date: 20220211
  Transmission Date: 20220423
  Serious: Yes (Other)
  Sender: FDA-Public Use
  Company Number: US-ROCHE-3021242

PATIENT
  Age: 90 Year
  Sex: Female

DRUGS (10)
  1. BEVACIZUMAB [Suspect]
     Active Substance: BEVACIZUMAB
     Indication: Age-related macular degeneration
     Route: 050
  2. VANCOMYCIN [Concomitant]
     Active Substance: VANCOMYCIN
     Route: 050
  3. CEFTAZIDIME [Concomitant]
     Active Substance: CEFTAZIDIME
  4. CIPROFLOXACIN [Concomitant]
     Active Substance: CIPROFLOXACIN
  5. CYCLOGYL [Concomitant]
     Active Substance: CYCLOPENTOLATE HYDROCHLORIDE
  6. MAXITROL [Concomitant]
     Active Substance: DEXAMETHASONE\NEOMYCIN SULFATE\POLYMYXIN B SULFATE
     Dosage: EVERY 3-4 HOURS
  7. DEXAMETHASONE [Concomitant]
     Active Substance: DEXAMETHASONE
  8. MOXIFLOXACIN [Concomitant]
     Active Substance: MOXIFLOXACIN
     Route: 065
  9. MOXIFLOXACIN [Concomitant]
     Active Substance: MOXIFLOXACIN
     Route: 048
  10. PREDNISOLONE [Concomitant]
     Active Substance: PREDNISOLONE

REACTIONS (3)
  - Bacterial endophthalmitis [Unknown]
  - Off label use [Unknown]
  - Off label use [Unknown]
